FAERS Safety Report 4589432-9 (Version None)
Quarter: 2005Q1

REPORT INFORMATION
  Report Type: 
  Country: None (occurrence: None)
  Receive Date: 20050223
  Receipt Date: 20050118
  Transmission Date: 20050727
  Serious: Yes (Life-Threatening, Hospitalization)
  Sender: FDA-Public Use
  Company Number: 200510218FR

PATIENT
  Age: 55 Year
  Sex: Female
  Weight: 70 kg

DRUGS (2)
  1. LASILIX 40 MG [Suspect]
     Route: 048
     Dates: start: 20040515, end: 20040915
  2. ALDACTONE [Concomitant]
     Route: 048
     Dates: start: 20040610, end: 20040910

REACTIONS (3)
  - ASTHENIA [None]
  - ELECTROCARDIOGRAM ABNORMAL [None]
  - HYPOKALAEMIA [None]
